FAERS Safety Report 19507252 (Version 1)
Quarter: 2021Q3

REPORT INFORMATION
  Report Type: Spontaneous
  Country: US (occurrence: US)
  Receive Date: 20210708
  Receipt Date: 20210708
  Transmission Date: 20211014
  Serious: Yes (Hospitalization)
  Sender: FDA-Public Use
  Company Number: None

PATIENT
  Age: 71 Year
  Sex: Male
  Weight: 99.6 kg

DRUGS (2)
  1. DAUNORUBICIN [Suspect]
     Active Substance: DAUNORUBICIN
     Dates: end: 20210428
  2. CYTARABINE. [Suspect]
     Active Substance: CYTARABINE
     Indication: PRODUCT USED FOR UNKNOWN INDICATION
     Dates: end: 20210503

REACTIONS (23)
  - Leukopenia [None]
  - Spleen disorder [None]
  - Tachycardia [None]
  - Thrombocytopenia [None]
  - Atrial fibrillation [None]
  - Bacteraemia [None]
  - Intra-abdominal haemorrhage [None]
  - Ileus [None]
  - Platelet count decreased [None]
  - Diarrhoea [None]
  - Abscess rupture [None]
  - Refusal of treatment by patient [None]
  - Intestinal dilatation [None]
  - Splenic abscess [None]
  - Blood lactate dehydrogenase abnormal [None]
  - Abdominal pain [None]
  - Decreased appetite [None]
  - Hypotension [None]
  - Haemoglobin decreased [None]
  - Packed red blood cell transfusion [None]
  - Platelet transfusion [None]
  - Intra-abdominal fluid collection [None]
  - Spleen scan abnormal [None]

NARRATIVE: CASE EVENT DATE: 20210503
